FAERS Safety Report 7374037-7 (Version None)
Quarter: 2011Q1

REPORT INFORMATION
  Report Type: 
  Country: None (occurrence: None)
  Receive Date: 20110325
  Receipt Date: 20101005
  Transmission Date: 20110831
  Serious: Yes (Hospitalization, Other)
  Sender: FDA-Public Use
  Company Number: US-BAYER-201013225NA

PATIENT
  Sex: Female
  Weight: 113.38 kg

DRUGS (11)
  1. TRAZODONE [Concomitant]
     Dosage: DOSE: 1 1/2 AT BED TIME
     Route: 065
  2. RANITIDINE [Concomitant]
     Indication: GASTROINTESTINAL DISORDER
     Dosage: DAILY DOSE 600 MG
     Route: 065
  3. LITHIUM CARBONATE [Concomitant]
     Dosage: DAILY DOSE 900 MG
     Route: 065
  4. TOPAMAX [Concomitant]
     Dosage: DAILY DOSE 200 MG
     Route: 065
  5. YASMIN [Suspect]
     Indication: CONTRACEPTION
     Route: 048
  6. UNCODEABLE ^UNCLASSIFIABLE^ [Concomitant]
  7. SPRINTEC [Concomitant]
  8. YAZ [Suspect]
     Indication: CONTRACEPTION
     Dosage: UNK
     Dates: start: 20060101
  9. LEVOTHYROXINE SODIUM [Concomitant]
     Dosage: DAILY DOSE 15 ?G
     Route: 065
  10. SYNTHROID [Concomitant]
  11. SEROQUEL [Concomitant]

REACTIONS (7)
  - GALLBLADDER DISORDER [None]
  - GALLBLADDER CHOLESTEROLOSIS [None]
  - CHOLELITHIASIS [None]
  - MENTAL DISORDER [None]
  - PANCREATITIS [None]
  - CHOLECYSTITIS CHRONIC [None]
  - CHOLECYSTITIS ACUTE [None]
